FAERS Safety Report 5718970-8 (Version None)
Quarter: 2008Q2

REPORT INFORMATION
  Report Type: 
  Country: None (occurrence: None)
  Receive Date: 20080423
  Receipt Date: 20080408
  Transmission Date: 20081010
  Serious: Yes (Hospitalization)
  Sender: FDA-Public Use
  Company Number: 2008S1005722

PATIENT
  Age: 69 Year
  Sex: Female
  Weight: 54 kg

DRUGS (3)
  1. LITHIUM CARBONATE [Suspect]
     Indication: BIPOLAR I DISORDER
     Dosage: 750 MG; DAILY
  2. INDOMETHACIN [Suspect]
  3. HYDROCHLOROTHIAZIDE [Suspect]
     Dosage: 75 MG; DAILY

REACTIONS (12)
  - ANAEMIA HAEMOLYTIC AUTOIMMUNE [None]
  - BLOOD PARATHYROID HORMONE INCREASED [None]
  - BLOOD SODIUM INCREASED [None]
  - COMA [None]
  - CONFUSIONAL STATE [None]
  - DEHYDRATION [None]
  - EXTRAPYRAMIDAL DISORDER [None]
  - GASTROENTERITIS [None]
  - HYPERCALCAEMIA [None]
  - NEPHROGENIC DIABETES INSIPIDUS [None]
  - NEUROLOGICAL SYMPTOM [None]
  - THERAPEUTIC AGENT TOXICITY [None]
